FAERS Safety Report 10100304 (Version 1)
Quarter: 2014Q2

REPORT INFORMATION
  Report Type: Spontaneous
  Country: US (occurrence: US)
  Receive Date: 20140423
  Receipt Date: 20140423
  Transmission Date: 20141212
  Serious: No
  Sender: FDA-Public Use
  Company Number: US-ENDO PHARMACEUTICALS INC.-CLON20140001

PATIENT
  Sex: Female

DRUGS (2)
  1. CLONIDINE HCL TABLETS [Suspect]
     Indication: PRODUCT USED FOR UNKNOWN INDICATION
     Route: 048
  2. CLONIDINE HCL TABLETS [Suspect]
     Route: 048

REACTIONS (2)
  - Blood pressure systolic increased [Unknown]
  - Blood pressure systolic decreased [Unknown]
